FAERS Safety Report 10213992 (Version 1)
Quarter: 2014Q2

REPORT INFORMATION
  Report Type: Report from Study
  Country: CO (occurrence: None)
  Receive Date: 20140530
  Receipt Date: 20140530
  Transmission Date: 20141212
  Serious: Yes (Other)
  Sender: FDA-Public Use
  Company Number: 2014-19620

PATIENT
  Sex: Female

DRUGS (2)
  1. EYLEA (AFLIBERCEPT INJECTION) [Suspect]
     Indication: AGE-RELATED MACULAR DEGENERATION
  2. LUCENTIS (RANIBIZUMAB) [Concomitant]

REACTIONS (2)
  - Eye haemorrhage [None]
  - Drug ineffective [None]
